FAERS Safety Report 8064308-3 (Version None)
Quarter: 2012Q1

REPORT INFORMATION
  Report Type: 
  Country: None (occurrence: None)
  Receive Date: 20120123
  Receipt Date: 20120111
  Transmission Date: 20120608
  Serious: Yes (Hospitalization)
  Sender: FDA-Public Use
  Company Number: IE-MEDIMMUNE-MEDI-0014548

PATIENT
  Sex: Female
  Weight: 6.7 kg

DRUGS (1)
  1. SYNAGIS [Suspect]
     Indication: PRADER-WILLI SYNDROME
     Route: 030
     Dates: start: 20111215, end: 20111215

REACTIONS (2)
  - PULMONARY OEDEMA [None]
  - HOSPITALISATION [None]
